FAERS Safety Report 9601101 (Version 2)
Quarter: 2013Q4

REPORT INFORMATION
  Report Type: Spontaneous
  Country: US (occurrence: US)
  Receive Date: 20131004
  Receipt Date: 20131004
  Transmission Date: 20140711
  Serious: No
  Sender: FDA-Public Use
  Company Number: US-AMGEN-USASP2013037777

PATIENT
  Age: 38 Year
  Sex: Female
  Weight: 104.31 kg

DRUGS (8)
  1. ENBREL [Suspect]
     Indication: RHEUMATOID ARTHRITIS
     Dosage: 50 MG, QWK
     Route: 058
     Dates: start: 201203
  2. MULTIVITAMINS, PLAIN [Concomitant]
     Dosage: UNK
  3. OMEGA 3                            /01334101/ [Concomitant]
     Dosage: 1000 MG, UNK
  4. ZYRTEC [Concomitant]
     Dosage: 10 MG, UNK
  5. SYNTHROID [Concomitant]
     Dosage: 25 MUG, UNK
  6. METHOTREXATE [Concomitant]
     Dosage: 2.5 MG, UNK
  7. B COMPLEX                          /07412401/ [Concomitant]
     Dosage: UNK
  8. BIOTIN [Concomitant]
     Dosage: 5000 UNK, UNK

REACTIONS (4)
  - Arthralgia [Not Recovered/Not Resolved]
  - Pain in extremity [Not Recovered/Not Resolved]
  - Arthritis [Not Recovered/Not Resolved]
  - Inflammation [Not Recovered/Not Resolved]
